FAERS Safety Report 9334218 (Version 1)
Quarter: 2013Q2

REPORT INFORMATION
  Report Type: Spontaneous
  Country: US (occurrence: US)
  Receive Date: 20130606
  Receipt Date: 20130606
  Transmission Date: 20140414
  Serious: No
  Sender: FDA-Public Use
  Company Number: US-AMGEN-USASP2013023034

PATIENT
  Age: 83 Year
  Sex: Female

DRUGS (4)
  1. PROLIA [Suspect]
     Indication: OSTEOPOROSIS POSTMENOPAUSAL
     Dosage: UNK UNK, Q6MO
     Dates: start: 20130311
  2. CITRACAL                           /00751520/ [Concomitant]
  3. VITAMIN D                          /00107901/ [Concomitant]
  4. ASPIRIN [Concomitant]
     Dosage: 81 MG, UNK

REACTIONS (8)
  - Pain [Unknown]
  - Headache [Unknown]
  - Bone density decreased [Unknown]
  - Sleep disorder due to general medical condition, insomnia type [Unknown]
  - Arthralgia [Unknown]
  - Bone pain [Unknown]
  - Back pain [Unknown]
  - Pain in extremity [Unknown]
